FAERS Safety Report 4543017-9 (Version None)
Quarter: 2005Q1

REPORT INFORMATION
  Report Type: 
  Country: None (occurrence: None)
  Receive Date: 20050103
  Receipt Date: 20041222
  Transmission Date: 20050727
  Serious: Yes (Hospitalization, Other)
  Sender: FDA-Public Use
  Company Number: CA-JNJFOC-20041001164

PATIENT
  Sex: Female

DRUGS (13)
  1. REMICADE [Suspect]
     Route: 042
  2. REMICADE [Suspect]
     Route: 042
  3. REMICADE [Suspect]
     Route: 042
  4. REMICADE [Suspect]
     Route: 042
  5. REMICADE [Suspect]
     Indication: CROHN'S DISEASE
     Route: 042
  6. IMURAN [Concomitant]
  7. IMURAN [Concomitant]
  8. SYNTHROID [Concomitant]
  9. METOPROLOL [Concomitant]
  10. MIN-OVRAL [Concomitant]
  11. MIN-OVRAL [Concomitant]
  12. PANTOPRAZOLE SODIUM [Concomitant]
  13. IMOVANE [Concomitant]

REACTIONS (11)
  - ADHESION [None]
  - ANTINUCLEAR ANTIBODY POSITIVE [None]
  - BLISTER [None]
  - CROHN'S DISEASE [None]
  - DISEASE RECURRENCE [None]
  - HERPES ZOSTER [None]
  - ILEOSTOMY CLOSURE [None]
  - PSORIASIS [None]
  - RASH [None]
  - RASH PAPULAR [None]
  - SMALL INTESTINAL OBSTRUCTION [None]
